FAERS Safety Report 4287334-9 (Version None)
Quarter: 2004Q1

REPORT INFORMATION
  Report Type: 
  Country: None (occurrence: None)
  Receive Date: 20040126
  Receipt Date: 20031114
  Transmission Date: 20041129
  Serious: No
  Sender: FDA-Public Use
  Company Number: USA030741591

PATIENT
  Age: 73 Year
  Sex: Female
  Weight: 45 kg

DRUGS (13)
  1. FORTEO [Suspect]
     Indication: OSTEOPOROSIS
     Dosage: 20 UG/DAY
     Dates: start: 20030619
  2. FOLIC ACID [Concomitant]
  3. ASPIRIN [Concomitant]
  4. VITAMIN C [Concomitant]
  5. VITAMIN E [Concomitant]
  6. VALIUM [Concomitant]
  7. EFFEXOR [Concomitant]
  8. EFFEXOR [Concomitant]
  9. SYNTHROID [Concomitant]
  10. ZESTORETIC [Concomitant]
  11. ACIPHEX [Concomitant]
  12. FOSAMAX (ALDENDRONATE SODIUM) [Concomitant]
  13. NEURONTIN [Concomitant]

REACTIONS (5)
  - INJECTION SITE DISCOLOURATION [None]
  - INJECTION SITE PAIN [None]
  - MYALGIA [None]
  - PAIN IN EXTREMITY [None]
  - SKIN DISORDER [None]
